FAERS Safety Report 17750753 (Version 1)
Quarter: 2020Q2

REPORT INFORMATION
  Report Type: Report from Study
  Country: US (occurrence: US)
  Receive Date: 20200506
  Receipt Date: 20200506
  Transmission Date: 20200714
  Serious: Yes (Hospitalization)
  Sender: FDA-Public Use
  Company Number: US-VERTEX PHARMACEUTICALS-2020-010019

PATIENT
  Age: 42 Year
  Sex: Male

DRUGS (2)
  1. TRIKAFTA [Suspect]
     Active Substance: ELEXACAFTOR\IVACAFTOR\TEZACAFTOR
     Dosage: 1 TAB (ELEXACAFTOR 100 MG, TEZACAFTOR 50 MG, IVACAFTOR 75 MG) QAM; 1 TAB IVACAFTOR 150 MG) QPM
     Route: 048
     Dates: start: 202004
  2. TRIKAFTA [Suspect]
     Active Substance: ELEXACAFTOR\IVACAFTOR\TEZACAFTOR
     Indication: CYSTIC FIBROSIS
     Dosage: 2 TABS (ELEXACAFTOR 100 MG, TEZACAFTOR 50 MG, IVACAFTOR 75 MG) QAM; 1 TAB IVACAFTOR 150 MG) QPM
     Route: 048
     Dates: start: 20200405, end: 202004

REACTIONS (4)
  - Constipation [Not Recovered/Not Resolved]
  - Decreased appetite [Not Recovered/Not Resolved]
  - Lacrimation increased [Not Recovered/Not Resolved]
  - Insomnia [Not Recovered/Not Resolved]

NARRATIVE: CASE EVENT DATE: 202004
